FAERS Safety Report 14635878 (Version 1)
Quarter: 2018Q1

REPORT INFORMATION
  Report Type: Spontaneous
  Country: US (occurrence: US)
  Receive Date: 20180314
  Receipt Date: 20180314
  Transmission Date: 20180509
  Serious: Yes (Other)
  Sender: FDA-Public Use
  Company Number: US-PFIZER INC-2018097318

PATIENT
  Age: 61 Year
  Sex: Female

DRUGS (3)
  1. NEURONTIN [Suspect]
     Active Substance: GABAPENTIN
     Indication: NEUROPATHY PERIPHERAL
     Dosage: UNK
  2. NEURONTIN [Suspect]
     Active Substance: GABAPENTIN
     Dosage: UNK
  3. NEURONTIN [Suspect]
     Active Substance: GABAPENTIN
     Dosage: 400 MG (800 MG TABLET IN HALF), UNK

REACTIONS (11)
  - Withdrawal syndrome [Unknown]
  - Influenza like illness [Unknown]
  - Panic attack [Unknown]
  - Disturbance in attention [Unknown]
  - Cold sweat [Unknown]
  - Seizure [Unknown]
  - Drug ineffective for unapproved indication [Unknown]
  - Tinnitus [Unknown]
  - Anxiety [Unknown]
  - Hyperhidrosis [Unknown]
  - Head discomfort [Unknown]
